FAERS Safety Report 9644950 (Version 4)
Quarter: 2013Q4

REPORT INFORMATION
  Report Type: Spontaneous
  Country: US (occurrence: US)
  Receive Date: 20131025
  Receipt Date: 20131226
  Transmission Date: 20140711
  Serious: No
  Sender: FDA-Public Use
  Company Number: US-PFIZER INC-2013303168

PATIENT
  Age: 65 Year
  Sex: Female
  Weight: 127 kg

DRUGS (3)
  1. LYRICA [Suspect]
     Indication: NEUROPATHY PERIPHERAL
     Dosage: 50 MG, UNK
  2. LYRICA [Suspect]
     Indication: PAIN
     Dosage: 100 MG, 3X/DAY
     Dates: end: 201310
  3. LYRICA [Suspect]
     Dosage: 100 MG, FIVE TIMES A DAY
     Dates: start: 201310

REACTIONS (3)
  - Off label use [Unknown]
  - Neuropathy peripheral [Unknown]
  - Drug ineffective for unapproved indication [Unknown]
